FAERS Safety Report 9312588 (Version 3)
Quarter: 2013Q4

REPORT INFORMATION
  Report Type: Spontaneous
  Country: US (occurrence: US)
  Receive Date: 20130528
  Receipt Date: 20131016
  Transmission Date: 20140711
  Serious: Yes (Hospitalization)
  Sender: FDA-Public Use
  Company Number: US-GLAXOSMITHKLINE-A1024134A

PATIENT
  Age: 40 Year
  Sex: Male

DRUGS (2)
  1. LAMICTAL [Suspect]
     Indication: EPILEPSY
     Dosage: 200MG TWICE PER DAY
     Route: 048
     Dates: start: 2011
  2. NO CONCURRENT MEDICATION [Concomitant]

REACTIONS (9)
  - Convulsion [Recovered/Resolved]
  - Nephrolithiasis [Recovering/Resolving]
  - Brain oedema [Recovering/Resolving]
  - Fatigue [Recovering/Resolving]
  - Drug dispensing error [Unknown]
  - Drug administration error [Recovered/Resolved]
  - Overdose [Unknown]
  - Headache [Unknown]
  - Anxiety [Unknown]
